FAERS Safety Report 7728257-X (Version None)
Quarter: 2011Q3

REPORT INFORMATION
  Report Type: 
  Country: None (occurrence: None)
  Receive Date: 20110905
  Receipt Date: 20110826
  Transmission Date: 20111222
  Serious: Yes (Other)
  Sender: FDA-Public Use
  Company Number: PHEH2009US13608

PATIENT
  Sex: Male

DRUGS (1)
  1. ZOMETA [Suspect]

REACTIONS (18)
  - ANHEDONIA [None]
  - OSTEOPOROSIS [None]
  - INJURY [None]
  - PAIN [None]
  - HAEMATURIA [None]
  - CAPILLARY DISORDER [None]
  - PROSTATE CANCER [None]
  - INTERVERTEBRAL DISC DEGENERATION [None]
  - SINUSITIS [None]
  - OSTEONECROSIS OF JAW [None]
  - DISABILITY [None]
  - MUSCULOSKELETAL PAIN [None]
  - RENAL CYST [None]
  - ANXIETY [None]
  - NECK PAIN [None]
  - METASTASES TO BONE [None]
  - RADICULOPATHY [None]
  - OBSTRUCTIVE AIRWAYS DISORDER [None]
